FAERS Safety Report 7210176-9 (Version None)
Quarter: 2011Q1

REPORT INFORMATION
  Report Type: 
  Country: None (occurrence: None)
  Receive Date: 20110105
  Receipt Date: 20101227
  Transmission Date: 20110831
  Serious: Yes (Other)
  Sender: FDA-Public Use
  Company Number: US-TEVA-261324USA

PATIENT

DRUGS (2)
  1. ANAGRELIDE HCL CAPSULES, 0.5 MG, 1 MG [Suspect]
     Indication: ESSENTIAL THROMBOCYTHAEMIA
  2. HYDROXYCARBAMIDE [Suspect]
     Indication: ESSENTIAL THROMBOCYTHAEMIA

REACTIONS (2)
  - MYELODYSPLASTIC SYNDROME [None]
  - ACUTE MYELOID LEUKAEMIA [None]
